FAERS Safety Report 16833853 (Version 1)
Quarter: 2019Q3

REPORT INFORMATION
  Report Type: Spontaneous
  Country: US (occurrence: US)
  Receive Date: 20190920
  Receipt Date: 20190920
  Transmission Date: 20191005
  Serious: No
  Sender: FDA-Public Use
  Company Number: US-PFIZER INC-2019401194

PATIENT
  Sex: Male
  Weight: 79.37 kg

DRUGS (1)
  1. VIAGRA [Suspect]
     Active Substance: SILDENAFIL CITRATE
     Indication: ERECTILE DYSFUNCTION
     Dosage: 100MG (PROBABLY LIKE 7, I TOOK A TOTAL OF 7 BUT IT WAS SPREAD OUT)

REACTIONS (1)
  - Genital infection fungal [Unknown]

NARRATIVE: CASE EVENT DATE: 201908
